FAERS Safety Report 4837970-3 (Version None)
Quarter: 2005Q4

REPORT INFORMATION
  Report Type: 
  Country: None (occurrence: None)
  Receive Date: 20051128
  Receipt Date: 20051110
  Transmission Date: 20060501
  Serious: Yes (Other)
  Sender: FDA-Public Use
  Company Number: BE-ROCHE-424270

PATIENT
  Age: 51 Year
  Sex: Male

DRUGS (19)
  1. CELLCEPT [Suspect]
     Dosage: TARGET TROUGH PLASMA CONCENTRATION OF 2.5 MG/L.
     Route: 065
  2. CELLCEPT [Suspect]
     Route: 065
  3. CELLCEPT [Suspect]
     Dosage: REDUCED DOSAGE FOLLOWING DISCONTINUATION OF RIFAMPICIN.
     Route: 065
  4. RIFADIN [Interacting]
     Indication: ANTI-INFECTIVE THERAPY
     Route: 065
  5. RIFADIN [Interacting]
     Route: 065
  6. PROGRAF [Concomitant]
     Dosage: TARGET THERAPEUTIC TROUGH BLOOD CONCENTRATIONS BETWEEN 8 AND 10 NG/ML.  DOSAGE REDUCED FOLLOWING DI+
     Route: 048
  7. MEDROL [Concomitant]
     Route: 065
  8. ATG FRESENIUS [Concomitant]
  9. NYSTATINE [Concomitant]
     Route: 048
  10. ZANTAC [Concomitant]
  11. FUNGIZONE [Concomitant]
  12. CYMEVENE [Concomitant]
  13. BACTRIM [Concomitant]
  14. CALCIUM CARBONATE/COLECALCIFEROL [Concomitant]
  15. CLEXANE [Concomitant]
     Indication: THROMBOSIS PROPHYLAXIS
     Route: 058
  16. NICOTIBINE [Concomitant]
  17. TEBRAZID [Concomitant]
  18. PYRIDOXINE HCL [Concomitant]
  19. MERONEM [Concomitant]

REACTIONS (6)
  - DRUG INTERACTION [None]
  - GRANULOMA [None]
  - NECROSIS [None]
  - PLEURAL HAEMORRHAGE [None]
  - POST PROCEDURAL COMPLICATION [None]
  - PYREXIA [None]
